FAERS Safety Report 18895120 (Version 3)
Quarter: 2021Q4

REPORT INFORMATION
  Report Type: Spontaneous
  Country: US (occurrence: US)
  Receive Date: 20210215
  Receipt Date: 20211207
  Transmission Date: 20220303
  Serious: Yes (Other)
  Sender: FDA-Public Use
  Company Number: US-PFIZER INC-2021123497

PATIENT
  Age: 74 Year
  Sex: Female

DRUGS (1)
  1. IBRANCE [Suspect]
     Active Substance: PALBOCICLIB
     Indication: Breast cancer metastatic
     Dosage: 100 MG
     Dates: start: 20181114

REACTIONS (9)
  - Clostridium difficile colitis [Unknown]
  - Blood iron decreased [Unknown]
  - Neoplasm progression [Unknown]
  - Dizziness [Unknown]
  - Fatigue [Unknown]
  - White blood cell count decreased [Unknown]
  - Diarrhoea [Unknown]
  - Asthenia [Unknown]
  - Insomnia [Unknown]
